FAERS Safety Report 9056505 (Version 1)
Quarter: 2013Q1

REPORT INFORMATION
  Report Type: Spontaneous
  Country: US (occurrence: US)
  Receive Date: 20130204
  Receipt Date: 20130204
  Transmission Date: 20140127
  Serious: Yes (Hospitalization)
  Sender: FDA-Public Use
  Company Number: US-ROXANE LABORATORIES, INC.-2013-RO-00173RO

PATIENT
  Age: 76 Year
  Sex: Male

DRUGS (13)
  1. CLOPIDOGREL [Suspect]
     Indication: CORONARY ARTERIAL STENT INSERTION
     Dosage: 75 MG
  2. ASPIRIN [Suspect]
     Indication: CORONARY ARTERIAL STENT INSERTION
     Dosage: 81 MG
  3. CARVEDILOL [Concomitant]
     Dosage: 12.5 MG
  4. BENAZEPRIL [Concomitant]
     Dosage: 20 MG
  5. ROSUVASTATIN [Concomitant]
     Dosage: 5 MG
  6. GLIPIZIDE [Concomitant]
     Dosage: 5 MG
  7. ALLOPURINOL [Concomitant]
     Dosage: 100 MG
  8. TAMSULOSIN [Concomitant]
     Dosage: 0.4 MG
  9. OMEPRAZOLE [Concomitant]
     Dosage: 20 MG
  10. PREDNISONE [Concomitant]
  11. SALMETEROL/FLUTICASONE [Concomitant]
     Route: 055
  12. ALBUTEROL/IPRATROPIUM [Concomitant]
     Route: 055
  13. TIOTROPIUM [Concomitant]
     Route: 055

REACTIONS (1)
  - Hepatic haematoma [Recovered/Resolved]
